FAERS Safety Report 17090036 (Version 1)
Quarter: 2019Q4

REPORT INFORMATION
  Report Type: Other
  Country: US (occurrence: US)
  Receive Date: 20191129
  Receipt Date: 20191129
  Transmission Date: 20200122
  Serious: Yes (Life-Threatening, Hospitalization, Other)
  Sender: FDA-Public Use
  Company Number: US-DENTSPLY-2019SCDP000646

PATIENT
  Sex: Male

DRUGS (16)
  1. AMIODARONE [Suspect]
     Active Substance: AMIODARONE
     Indication: RIGHT VENTRICULAR DYSFUNCTION
     Dosage: 15 MICROGRAM/KILOGRAM
     Route: 042
  2. ESMOLOL [Suspect]
     Active Substance: ESMOLOL HYDROCHLORIDE
     Indication: RIGHT VENTRICULAR DYSFUNCTION
  3. ESMOLOL [Suspect]
     Active Substance: ESMOLOL HYDROCHLORIDE
     Indication: SINUS TACHYCARDIA
  4. PROCAINAMIDE [Suspect]
     Active Substance: PROCAINAMIDE HYDROCHLORIDE
     Indication: VENTRICULAR TACHYCARDIA
  5. LIDOCAINE. [Suspect]
     Active Substance: LIDOCAINE
     Indication: PULMONARY VALVE STENOSIS
     Dosage: UNK
  6. LIDOCAINE. [Suspect]
     Active Substance: LIDOCAINE
     Indication: SINUS TACHYCARDIA
  7. LIDOCAINE. [Suspect]
     Active Substance: LIDOCAINE
     Indication: RIGHT VENTRICULAR DYSFUNCTION
  8. PROCAINAMIDE [Suspect]
     Active Substance: PROCAINAMIDE HYDROCHLORIDE
     Indication: PULMONARY VALVE STENOSIS
     Dosage: UNK
  9. PROCAINAMIDE [Suspect]
     Active Substance: PROCAINAMIDE HYDROCHLORIDE
     Indication: SINUS TACHYCARDIA
  10. ESMOLOL [Suspect]
     Active Substance: ESMOLOL HYDROCHLORIDE
     Indication: VENTRICULAR TACHYCARDIA
     Dosage: UNK
  11. AMIODARONE [Suspect]
     Active Substance: AMIODARONE
     Indication: VENTRICULAR TACHYCARDIA
  12. LIDOCAINE. [Suspect]
     Active Substance: LIDOCAINE
     Indication: VENTRICULAR TACHYCARDIA
  13. ESMOLOL [Suspect]
     Active Substance: ESMOLOL HYDROCHLORIDE
     Indication: PULMONARY VALVE STENOSIS
  14. AMIODARONE [Suspect]
     Active Substance: AMIODARONE
     Indication: PULMONARY VALVE STENOSIS
     Dosage: 20 MICROGRAM/KILOGRAM, DOSE INCREMENTALLY ESCALATED TO A MAXIMUM OF 20 MCG/KG/MINUTE
     Route: 042
  15. AMIODARONE [Suspect]
     Active Substance: AMIODARONE
     Indication: SINUS TACHYCARDIA
  16. PROCAINAMIDE [Suspect]
     Active Substance: PROCAINAMIDE HYDROCHLORIDE
     Indication: RIGHT VENTRICULAR DYSFUNCTION

REACTIONS (1)
  - Drug ineffective [Recovered/Resolved]
